FAERS Safety Report 4449455-7 (Version None)
Quarter: 2004Q3

REPORT INFORMATION
  Report Type: 
  Country: None (occurrence: None)
  Receive Date: 20040914
  Receipt Date: 20040831
  Transmission Date: 20050211
  Serious: Yes (Death, Other)
  Sender: FDA-Public Use
  Company Number: 2004231520JP

PATIENT
  Sex: Female

DRUGS (2)
  1. CLINDAMYCIN HCL [Suspect]
     Indication: PNEUMONIA
     Dosage: 1.2 G, DAILY, IV
     Route: 042
     Dates: start: 19981125, end: 19981206
  2. PIPERACILLIN SODIUM [Suspect]
     Indication: PNEUMONIA
     Dosage: 2 G, DAILY, IV
     Route: 042
     Dates: start: 19981125, end: 19981206

REACTIONS (11)
  - ANAPHYLACTOID REACTION [None]
  - CANDIDIASIS [None]
  - EXANTHEM [None]
  - GLOSSITIS [None]
  - LIVER DISORDER [None]
  - MULTI-ORGAN FAILURE [None]
  - RESPIRATORY FAILURE [None]
  - SEPTIC SHOCK [None]
  - STAPHYLOCOCCAL INFECTION [None]
  - STOMATITIS [None]
  - TOXIC SKIN ERUPTION [None]
